FAERS Safety Report 7416044-1 (Version None)
Quarter: 2011Q2

REPORT INFORMATION
  Report Type: 
  Country: None (occurrence: None)
  Receive Date: 20110414
  Receipt Date: 20110405
  Transmission Date: 20111010
  Serious: Yes (Other)
  Sender: FDA-Public Use
  Company Number: US-ASTRAZENECA-2011SE08370

PATIENT
  Age: 18093 Day
  Sex: Female

DRUGS (22)
  1. LIDOCAINE/PRILOCAINE [Suspect]
     Indication: FIBROMYALGIA
     Route: 062
  2. LISINOPRIL AND HYDROCHLOROTHIAZIDE [Suspect]
     Dosage: 20/12.5 MG 2 DF EVERY MORNING
     Route: 048
  3. TOPAMAX [Concomitant]
  4. DEXILANT [Concomitant]
     Indication: GASTROOESOPHAGEAL REFLUX DISEASE
  5. ZANAFLEX [Concomitant]
  6. VICODIN [Concomitant]
     Dosage: 10/325 SIX TIMES A DAY
  7. STOOL SOFTENER [Concomitant]
  8. LORATADINE [Concomitant]
  9. METOPROLOL TARTRATE [Concomitant]
     Dosage: 50 MG EVERY MORNING+ 0.5 DF EVERY AFTERNOON
  10. CELEXA [Concomitant]
  11. XANAX [Concomitant]
     Indication: ANXIETY
     Dosage: 1 MG EVERY 8 HOURS, AS REQUIRED (2 DAILY)
  12. AMBIEN [Concomitant]
  13. ASPIRIN [Concomitant]
  14. WOMENS MULTI-VITAMIN [Concomitant]
     Dosage: DAILY
  15. D3 [Concomitant]
  16. PEPCID [Concomitant]
  17. PHILLIPS COLON HEALTH PROBIOTIC CAPS [Concomitant]
  18. SEROQUEL [Suspect]
     Route: 048
     Dates: start: 20090101, end: 20101201
  19. TOPAMAX [Concomitant]
  20. FENTANYL [Concomitant]
  21. LIDODERM [Concomitant]
  22. PHILLIPS LAXATIVE [Concomitant]

REACTIONS (6)
  - TARDIVE DYSKINESIA [None]
  - BLOOD GLUCOSE INCREASED [None]
  - HYPERLIPIDAEMIA [None]
  - ABNORMAL DREAMS [None]
  - DRUG INEFFECTIVE [None]
  - METABOLIC SYNDROME [None]
